FAERS Safety Report 4420683-X (Version None)
Quarter: 2004Q3

REPORT INFORMATION
  Report Type: 
  Country: None (occurrence: None)
  Receive Date: 20040809
  Receipt Date: 20040422
  Transmission Date: 20050211
  Serious: No
  Sender: FDA-Public Use
  Company Number: US-GLAXOSMITHKLINE-A0508098A

PATIENT
  Age: 52 Year
  Sex: Female

DRUGS (4)
  1. PAXIL [Suspect]
     Indication: FIBROMYALGIA
     Dosage: 20MG PER DAY
     Route: 048
     Dates: start: 19970101, end: 20040407
  2. LEVOXYL [Concomitant]
  3. AMARYL [Concomitant]
  4. GLUCOPHAGE [Concomitant]

REACTIONS (6)
  - DRUG WITHDRAWAL SYNDROME [None]
  - IRRITABILITY [None]
  - NIGHT SWEATS [None]
  - PANIC ATTACK [None]
  - PARAESTHESIA [None]
  - PHOTOPSIA [None]
